FAERS Safety Report 16867480 (Version 2)
Quarter: 2019Q3

REPORT INFORMATION
  Report Type: Spontaneous
  Country: US (occurrence: US)
  Receive Date: 20190930
  Receipt Date: 20190930
  Transmission Date: 20191005
  Serious: No
  Sender: FDA-Public Use
  Company Number: US-INDIVIOR US-INDV-120712-2019

PATIENT
  Sex: Male

DRUGS (2)
  1. SUBLOCADE [Suspect]
     Active Substance: BUPRENORPHINE
     Indication: DRUG USE DISORDER
     Dosage: 300 MILLIGRAM, QMO ( TWO INJECTIONS)
     Route: 058
     Dates: start: 20190426, end: 20190531
  2. SUBLOCADE [Suspect]
     Active Substance: BUPRENORPHINE
     Indication: DRUG USE DISORDER
     Dosage: UNK
     Route: 065

REACTIONS (2)
  - Drug withdrawal syndrome [Not Recovered/Not Resolved]
  - Product dispensing issue [Not Recovered/Not Resolved]

NARRATIVE: CASE EVENT DATE: 2019
